FAERS Safety Report 8301815-X (Version None)
Quarter: 2012Q2

REPORT INFORMATION
  Report Type: 
  Country: None (occurrence: None)
  Receive Date: 20120420
  Receipt Date: 20120417
  Transmission Date: 20120825
  Serious: Yes (Life-Threatening, Other)
  Sender: FDA-Public Use
  Company Number: GB-ABBOTT-12P-167-0926343-00

PATIENT
  Age: 52 Year
  Sex: Male

DRUGS (3)
  1. AMLODIPINE [Concomitant]
     Indication: HYPERTENSION
     Dates: start: 20020101, end: 20100502
  2. METFORMIN HCL [Concomitant]
     Indication: TYPE 2 DIABETES MELLITUS
     Dates: start: 20060101
  3. HUMIRA [Suspect]
     Indication: PSORIASIS
     Route: 058
     Dates: start: 20090707

REACTIONS (1)
  - LUNG SQUAMOUS CELL CARCINOMA STAGE UNSPECIFIED [None]
